FAERS Safety Report 14225771 (Version 1)
Quarter: 2017Q4

REPORT INFORMATION
  Report Type: Spontaneous
  Country: US (occurrence: None)
  Receive Date: 20171123
  Receipt Date: 20171123
  Transmission Date: 20180321
  Serious: Yes (Hospitalization)
  Sender: FDA-Public Use
  Company Number: None

PATIENT
  Sex: Female
  Weight: 58.2 kg

DRUGS (2)
  1. CARBOPLATIN. [Suspect]
     Active Substance: CARBOPLATIN
     Dates: end: 20171113
  2. GEMCITABINE HYDROCHLORIDE. [Suspect]
     Active Substance: GEMCITABINE HYDROCHLORIDE
     Dates: end: 20171113

REACTIONS (5)
  - Neuropathy peripheral [None]
  - Facial paralysis [None]
  - Muscular weakness [None]
  - Hypoaesthesia [None]
  - Metastases to central nervous system [None]

NARRATIVE: CASE EVENT DATE: 20171117
